FAERS Safety Report 7374416-8 (Version None)
Quarter: 2011Q1

REPORT INFORMATION
  Report Type: 
  Country: None (occurrence: None)
  Receive Date: 20110325
  Receipt Date: 20110318
  Transmission Date: 20110831
  Serious: Yes (Hospitalization)
  Sender: FDA-Public Use
  Company Number: FR-SANOFI-AVENTIS-2011SA016644

PATIENT
  Age: 43 Year
  Sex: Male

DRUGS (4)
  1. CYMEVAN [Suspect]
     Indication: HERPES OESOPHAGITIS
     Route: 041
     Dates: start: 20101214, end: 20101217
  2. BACTRIM [Suspect]
     Route: 048
     Dates: start: 20101128, end: 20101217
  3. FUNGIZONE [Concomitant]
     Route: 048
  4. LOVENOX [Suspect]
     Indication: THROMBOSIS PROPHYLAXIS
     Route: 058
     Dates: start: 20101214, end: 20101217

REACTIONS (1)
  - BICYTOPENIA [None]
